FAERS Safety Report 8432884-4 (Version None)
Quarter: 2012Q2

REPORT INFORMATION
  Report Type: 
  Country: None (occurrence: None)
  Receive Date: 20120613
  Receipt Date: 20120608
  Transmission Date: 20120825
  Serious: Yes (Disabling)
  Sender: FDA-Public Use
  Company Number: PL-ROCHE-1063299

PATIENT
  Sex: Female

DRUGS (3)
  1. MABTHERA [Suspect]
     Route: 042
     Dates: start: 20110401, end: 20110501
  2. MABTHERA [Suspect]
     Indication: RHEUMATOID ARTHRITIS
     Route: 042
     Dates: start: 20100929, end: 20101001
  3. MABTHERA [Suspect]
     Route: 042
     Dates: start: 20111101, end: 20111118

REACTIONS (1)
  - BREAST CANCER [None]
